FAERS Safety Report 12797614 (Version 1)
Quarter: 2016Q3

REPORT INFORMATION
  Report Type: Report from Study
  Country: US (occurrence: US)
  Receive Date: 20160930
  Receipt Date: 20160930
  Transmission Date: 20161109
  Serious: Yes (Other)
  Sender: FDA-Public Use
  Company Number: US-AMGEN-USASL2016133479

PATIENT

DRUGS (1)
  1. KYPROLIS [Suspect]
     Active Substance: CARFILZOMIB
     Indication: PRODUCT USED FOR UNKNOWN INDICATION
     Dosage: UNK
     Route: 065

REACTIONS (18)
  - Hyperkalaemia [Unknown]
  - Acute kidney injury [Unknown]
  - Diplopia [Unknown]
  - Bite [Unknown]
  - Anaemia [Unknown]
  - Pneumonia bacterial [Unknown]
  - Muscular weakness [Unknown]
  - Lip and/or oral cavity cancer [Unknown]
  - Plasmacytoma [Unknown]
  - Agranulocytosis [Unknown]
  - Hypogammaglobulinaemia [Unknown]
  - Bone disorder [Unknown]
  - Adult failure to thrive [Unknown]
  - Thrombocytopenia [Unknown]
  - Tension headache [Unknown]
  - Brain neoplasm malignant [Unknown]
  - Pyrexia [Unknown]
  - Myalgia [Unknown]

NARRATIVE: CASE EVENT DATE: 20150930
